FAERS Safety Report 19100758 (Version 1)
Quarter: 2021Q2

REPORT INFORMATION
  Report Type: Spontaneous
  Country: US (occurrence: US)
  Receive Date: 20210407
  Receipt Date: 20210407
  Transmission Date: 20210717
  Serious: No
  Sender: FDA-Public Use
  Company Number: US-ORGANON-O2103USA002219

PATIENT
  Age: 34 Year
  Sex: Female
  Weight: 92.97 kg

DRUGS (1)
  1. NEXPLANON [Suspect]
     Active Substance: ETONOGESTREL
     Indication: CONTRACEPTION
     Dosage: 68MG IMPLANT/ONCE, IN LEFT ARM
     Route: 059
     Dates: start: 20210312, end: 20210317

REACTIONS (4)
  - Implant site pain [Recovered/Resolved]
  - Device breakage [Recovered/Resolved]
  - Implant site swelling [Recovered/Resolved]
  - Implant site irritation [Recovered/Resolved]

NARRATIVE: CASE EVENT DATE: 20210312
